FAERS Safety Report 23068268 (Version 1)
Quarter: 2023Q4

REPORT INFORMATION
  Report Type: Spontaneous
  Country: US (occurrence: None)
  Receive Date: 20231013
  Receipt Date: 20231013
  Transmission Date: 20240110
  Serious: Yes (Hospitalization, Other)
  Sender: FDA-Public Use
  Company Number: None

PATIENT
  Age: 77 Year
  Sex: Female

DRUGS (2)
  1. LORAZEPAM [Suspect]
     Active Substance: LORAZEPAM
     Indication: Magnetic resonance imaging
     Dates: start: 20231010
  2. LORAZEPAM [Suspect]
     Active Substance: LORAZEPAM
     Indication: Procedural anxiety

REACTIONS (5)
  - Disorientation [None]
  - Disorientation [None]
  - Agitation [None]
  - Dysarthria [None]
  - Hallucination [None]

NARRATIVE: CASE EVENT DATE: 20231010
